FAERS Safety Report 4931833-0 (Version None)
Quarter: 2006Q1

REPORT INFORMATION
  Report Type: 
  Country: None (occurrence: None)
  Receive Date: 20060303
  Receipt Date: 20051206
  Transmission Date: 20060701
  Serious: Yes (Other)
  Sender: FDA-Public Use
  Company Number: DE-BRISTOL-MYERS SQUIBB COMPANY-13205190

PATIENT
  Age: 41 Year
  Sex: Female
  Weight: 86 kg

DRUGS (1)
  1. ABILIFY [Suspect]
     Indication: SCHIZOPHRENIA
     Route: 048
     Dates: start: 20050701

REACTIONS (3)
  - ALOPECIA [None]
  - DYSKINESIA [None]
  - SEXUAL DYSFUNCTION [None]
